FAERS Safety Report 14625440 (Version 3)
Quarter: 2019Q1

REPORT INFORMATION
  Report Type: Spontaneous
  Country: US (occurrence: US)
  Receive Date: 20180312
  Receipt Date: 20190311
  Transmission Date: 20190417
  Serious: No
  Sender: FDA-Public Use
  Company Number: US-ALLERGAN-1801930US

PATIENT
  Sex: Female

DRUGS (2)
  1. LOSARTIN [Concomitant]
     Active Substance: LOSARTAN
     Indication: HYPERTENSION
     Dosage: 50 MG, UNK
     Route: 065
  2. OXYTROL [Suspect]
     Active Substance: OXYBUTYNIN
     Indication: HYPERTONIC BLADDER
     Dosage: THREE PATCHES ONLY
     Route: 062

REACTIONS (5)
  - Application site erythema [Recovering/Resolving]
  - Incorrect dose administered [Unknown]
  - Skin burning sensation [Recovered/Resolved]
  - Wrong technique in product usage process [Unknown]
  - Application site irritation [Recovered/Resolved]
